FAERS Safety Report 22938348 (Version 2)
Quarter: 2023Q4

REPORT INFORMATION
  Report Type: Spontaneous
  Country: JP (occurrence: JP)
  Receive Date: 20230913
  Receipt Date: 20231221
  Transmission Date: 20240110
  Serious: Yes (Other)
  Sender: FDA-Public Use
  Company Number: JP-BRISTOL-MYERS SQUIBB COMPANY-2023-118411

PATIENT
  Age: 79 Year
  Sex: Female
  Weight: 52 kg

DRUGS (4)
  1. EMPLICITI [Suspect]
     Active Substance: ELOTUZUMAB
     Indication: Plasma cell myeloma
     Dates: start: 20170210, end: 20170726
  2. REVLIMID [Suspect]
     Active Substance: LENALIDOMIDE
     Indication: Plasma cell myeloma
     Dosage: 20MGX21 PER CYCLE
     Dates: start: 20150702, end: 20170209
  3. REVLIMID [Suspect]
     Active Substance: LENALIDOMIDE
     Dosage: 10MGX21 PER CYCLE
     Dates: start: 20170210, end: 20170726
  4. LENADEX [Suspect]
     Active Substance: DEXAMETHASONE ACETATE
     Indication: Plasma cell myeloma
     Dates: start: 20150702, end: 20170726

REACTIONS (3)
  - Drug ineffective [Unknown]
  - Urinary tract infection [Unknown]
  - Immune thrombocytopenia [Recovering/Resolving]

NARRATIVE: CASE EVENT DATE: 20170101
